FAERS Safety Report 8386554-1 (Version None)
Quarter: 2012Q2

REPORT INFORMATION
  Report Type: 
  Country: None (occurrence: None)
  Receive Date: 20120525
  Receipt Date: 20110706
  Transmission Date: 20120825
  Serious: No
  Sender: FDA-Public Use
  Company Number: US-GLAXOSMITHKLINE-A0935150A

PATIENT
  Age: 35 Year
  Sex: Female

DRUGS (5)
  1. VERAMYST [Suspect]
     Indication: NASAL OEDEMA
     Dosage: 1SPR PER DAY
     Route: 045
     Dates: start: 20100101, end: 20110501
  2. LISINOPRIL [Concomitant]
  3. METFORMIN HCL [Concomitant]
  4. HYDROCHLOROTHIAZIDE [Concomitant]
  5. GLIPIZIDE [Concomitant]

REACTIONS (1)
  - WHITE BLOOD CELL COUNT INCREASED [None]
